FAERS Safety Report 16840297 (Version 1)
Quarter: 2019Q3

REPORT INFORMATION
  Report Type: Other
  Country: US (occurrence: US)
  Receive Date: 20190923
  Receipt Date: 20190923
  Transmission Date: 20191005
  Serious: Yes (Life-Threatening, Hospitalization, Other)
  Sender: FDA-Public Use
  Company Number: US-C B FLEET CO INC-201909-US-003039

PATIENT
  Age: 89 Year
  Sex: Female

DRUGS (2)
  1. PHENAZOPYRIDINE HYDROCHLORIDE. [Suspect]
     Active Substance: PHENAZOPYRIDINE HYDROCHLORIDE
     Indication: DYSURIA
     Dosage: TAKING FOR SEVERAL WEEKS
     Route: 048
  2. ESTROGEN CREAM [Concomitant]
     Indication: ATROPHIC VULVOVAGINITIS

REACTIONS (7)
  - Methaemoglobinaemia [Recovered/Resolved]
  - Abdominal pain upper [Recovered/Resolved]
  - Incorrect product administration duration [None]
  - Jaundice [Recovered/Resolved]
  - Suprapubic pain [Recovered/Resolved]
  - Anaemia [Recovered/Resolved]
  - Oxygen saturation decreased [Recovered/Resolved]
